FAERS Safety Report 8010118 (Version 10)
Quarter: 2013Q1

REPORT INFORMATION
  Report Type: Spontaneous
  Country: US (occurrence: US)
  Receive Date: 20110627
  Receipt Date: 20130122
  Transmission Date: 20140127
  Serious: Yes (Other)
  Sender: FDA-Public Use
  Company Number: PHEH2011US00493

PATIENT
  Sex: Male

DRUGS (11)
  1. ZOMETA [Suspect]
     Indication: METASTASES TO BONE
     Route: 042
  2. ZOMETA [Suspect]
     Indication: PROSTATE CANCER METASTATIC
  3. LUPRON [Concomitant]
  4. CASODEX [Concomitant]
     Dates: end: 20090701
  5. PERIDEX [Concomitant]
  6. NEXIUM [Concomitant]
  7. ACTOS [Concomitant]
  8. METFORMIN [Concomitant]
  9. DARVOCET-N [Concomitant]
  10. SIMVASTATIN [Concomitant]
  11. ANTIBIOTICS [Concomitant]

REACTIONS (48)
  - Osteonecrosis of jaw [Unknown]
  - Pain [Unknown]
  - Deformity [Unknown]
  - Tooth abscess [Unknown]
  - Swelling [Unknown]
  - Emotional distress [Unknown]
  - Pain in jaw [Recovering/Resolving]
  - Tenderness [Unknown]
  - Purulent discharge [Unknown]
  - Cyst [Unknown]
  - Cellulitis [Unknown]
  - Abscess jaw [Unknown]
  - Periodontitis [Unknown]
  - Osteomyelitis [Unknown]
  - Toothache [Unknown]
  - Tooth infection [Unknown]
  - Oedema [Unknown]
  - Discomfort [Unknown]
  - Mastication disorder [Unknown]
  - Facial pain [Unknown]
  - Exposed bone in jaw [Unknown]
  - Diabetes mellitus [Unknown]
  - Hypertension [Unknown]
  - Large intestine polyp [Unknown]
  - VIth nerve paralysis [Unknown]
  - Urinary retention [Unknown]
  - Deafness [Unknown]
  - Pelvic pain [Unknown]
  - Spinal osteoarthritis [Unknown]
  - Pancytopenia [Unknown]
  - Nephrolithiasis [Unknown]
  - Atelectasis [Unknown]
  - Lung disorder [Unknown]
  - Bronchitis [Unknown]
  - Proctalgia [Unknown]
  - Nasopharyngitis [Unknown]
  - Diarrhoea [Unknown]
  - Hypercholesterolaemia [Unknown]
  - Gastrooesophageal reflux disease [Unknown]
  - Pollakiuria [Unknown]
  - Erythema of eyelid [Unknown]
  - Eyelid oedema [Unknown]
  - Sleep apnoea syndrome [Unknown]
  - Anxiety [Unknown]
  - Nocturia [Unknown]
  - Back pain [Unknown]
  - Arthralgia [Unknown]
  - Micturition urgency [Unknown]
